FAERS Safety Report 4764536-6 (Version None)
Quarter: 2005Q3

REPORT INFORMATION
  Report Type: 
  Country: None (occurrence: None)
  Receive Date: 20050909
  Receipt Date: 20050905
  Transmission Date: 20060218
  Serious: Yes (Hospitalization)
  Sender: FDA-Public Use
  Company Number: PHRM2005FR02388

PATIENT
  Age: 74 Year
  Sex: Female

DRUGS (1)
  1. AREDIA [Suspect]
     Indication: RHEUMATOID ARTHRITIS
     Dosage: 90 MG, QMO
     Route: 042
     Dates: start: 20020701

REACTIONS (2)
  - ASEPTIC NECROSIS BONE [None]
  - TOOTH EXTRACTION [None]
